FAERS Safety Report 10526915 (Version 1)
Quarter: 2014Q4

REPORT INFORMATION
  Report Type: Spontaneous
  Country: US (occurrence: None)
  Receive Date: 20141015
  Receipt Date: 20141015
  Transmission Date: 20150528
  Serious: Yes (Life-Threatening, Hospitalization, Disabling, Other)
  Sender: FDA-Public Use
  Company Number: None

PATIENT
  Age: 71 Year
  Sex: Male
  Weight: 61.24 kg

DRUGS (1)
  1. XOLAIR [Suspect]
     Active Substance: OMALIZUMAB
     Dosage: 1000 ML EVERY 2 WEEKS EVERY TWO WEEKS INTO THE MUSCLE
     Route: 030

REACTIONS (2)
  - Myocardial infarction [None]
  - Prostate cancer [None]

NARRATIVE: CASE EVENT DATE: 20141013
